FAERS Safety Report 10308578 (Version 3)
Quarter: 2015Q4

REPORT INFORMATION
  Report Type: Report from Study
  Country: US (occurrence: US)
  Receive Date: 20140716
  Receipt Date: 20151211
  Transmission Date: 20160304
  Serious: Yes (Hospitalization, Other)
  Sender: FDA-Public Use
  Company Number: PHHY2012US131888

PATIENT
  Age: 57 Year
  Sex: Male

DRUGS (17)
  1. AVASTIN [Suspect]
     Active Substance: BEVACIZUMAB
     Dosage: 1.25 MG, UNK
     Route: 031
     Dates: start: 20120822
  2. AVASTIN [Suspect]
     Active Substance: BEVACIZUMAB
     Indication: DIABETIC RETINAL OEDEMA
     Dosage: 25 MG, 1 IN 1 AS REQUIRED
     Route: 031
  3. PHENYLEPHRINE [Concomitant]
     Active Substance: PHENYLEPHRINE\PHENYLEPHRINE HYDROCHLORIDE
     Dosage: DROPS
     Route: 047
  4. LIDOCAINE. [Concomitant]
     Active Substance: LIDOCAINE
     Indication: ANAESTHESIA
     Dosage: UNK
     Route: 057
  5. LUCENTIS [Suspect]
     Active Substance: RANIBIZUMAB
     Indication: DIABETIC RETINAL OEDEMA
     Dosage: 0.5 MG, QMO
     Route: 031
     Dates: start: 20111220
  6. PREDNISONE. [Suspect]
     Active Substance: PREDNISONE
     Indication: PRODUCT USED FOR UNKNOWN INDICATION
     Dosage: UNK
     Route: 065
  7. TRIESENCE [Suspect]
     Active Substance: TRIAMCINOLONE ACETONIDE
     Indication: DIABETIC RETINAL OEDEMA
     Dosage: 2 MG, 1 IN 1 AS REQUIRED
     Route: 031
  8. AVASTIN [Suspect]
     Active Substance: BEVACIZUMAB
     Dosage: 1.25 MG, UNK
     Route: 031
     Dates: start: 20120711
  9. TROPICAMIDE. [Concomitant]
     Active Substance: TROPICAMIDE
     Dosage: DROPS
     Route: 047
  10. COMBIGAN [Concomitant]
     Active Substance: BRIMONIDINE TARTRATE\TIMOLOL MALEATE
     Indication: GLAUCOMA
     Dosage: 1 GTT, 2 IN 1 DAY
     Route: 047
  11. BETADINE [Concomitant]
     Active Substance: POVIDONE-IODINE
     Dosage: UNK
     Route: 061
  12. CIPROFLOXACIN. [Concomitant]
     Active Substance: CIPROFLOXACIN
     Dosage: 1 GTT, 4 IN 1 DAY
     Route: 047
  13. COMBIGAN [Concomitant]
     Active Substance: BRIMONIDINE TARTRATE\TIMOLOL MALEATE
     Indication: INTRAOCULAR PRESSURE INCREASED
  14. LUCENTIS [Suspect]
     Active Substance: RANIBIZUMAB
     Indication: DIABETIC EYE DISEASE
  15. AVASTIN [Suspect]
     Active Substance: BEVACIZUMAB
     Dosage: 1.25 MG, UNK
     Route: 031
     Dates: start: 20130703
  16. PROPARACAINE [Concomitant]
     Active Substance: PROPARACAINE
     Indication: ANAESTHESIA
     Dosage: UNK
     Route: 061
  17. LUCENTIS [Suspect]
     Active Substance: RANIBIZUMAB
     Indication: DIABETIC RETINOPATHY
     Dosage: 0.3 MG, QMO
     Route: 031

REACTIONS (12)
  - Vitreous floaters [Unknown]
  - Meibomian gland dysfunction [Unknown]
  - Vision blurred [Unknown]
  - Cataract [Unknown]
  - Diabetic retinal oedema [Unknown]
  - Off label use [Unknown]
  - Blood glucose increased [Unknown]
  - Conjunctival haemorrhage [Unknown]
  - Eye pain [Unknown]
  - Eye naevus [Unknown]
  - Pneumonia [Unknown]
  - Intraocular pressure increased [Unknown]

NARRATIVE: CASE EVENT DATE: 20120313
